FAERS Safety Report 8399849-2 (Version None)
Quarter: 2012Q2

REPORT INFORMATION
  Report Type: 
  Country: None (occurrence: None)
  Receive Date: 20120531
  Receipt Date: 20120524
  Transmission Date: 20120825
  Serious: Yes (Hospitalization)
  Sender: FDA-Public Use
  Company Number: US-UCBSA-058167

PATIENT
  Age: 58 Year
  Sex: Female

DRUGS (2)
  1. PREDNISONE TAB [Concomitant]
  2. CIMZIA [Suspect]
     Indication: RHEUMATOID ARTHRITIS
     Dosage: STARTED AT END OF MAR-2012
     Dates: start: 20120301, end: 20120101

REACTIONS (5)
  - NAUSEA [None]
  - DYSPNOEA [None]
  - VOMITING [None]
  - RASH [None]
  - URTICARIA [None]
